FAERS Safety Report 22074667 (Version 1)
Quarter: 2023Q1

REPORT INFORMATION
  Report Type: Spontaneous
  Country: US (occurrence: None)
  Receive Date: 20230308
  Receipt Date: 20230308
  Transmission Date: 20230418
  Serious: Yes (Disabling)
  Sender: FDA-Public Use
  Company Number: None

PATIENT
  Age: 51 Year
  Sex: Female
  Weight: 67.5 kg

DRUGS (1)
  1. CITROMA MAGNESIUM CITRATE [Suspect]
     Active Substance: MAGNESIUM CITRATE
     Indication: Colonoscopy
     Dosage: OTHER QUANTITY : 10 OUNCE(S);?
     Route: 048
     Dates: start: 20220601, end: 20220601

REACTIONS (4)
  - Constipation [None]
  - Abdominal distension [None]
  - Abdominal pain [None]
  - Urinary tract infection [None]

NARRATIVE: CASE EVENT DATE: 20220630
